FAERS Safety Report 7762613-9 (Version None)
Quarter: 2011Q3

REPORT INFORMATION
  Report Type: 
  Country: None (occurrence: None)
  Receive Date: 20110920
  Receipt Date: 20110913
  Transmission Date: 20111222
  Serious: Yes (Death, Hospitalization)
  Sender: FDA-Public Use
  Company Number: JP-GLAXOSMITHKLINE-B0698507A

PATIENT
  Sex: Male
  Weight: 50 kg

DRUGS (37)
  1. ZOVIRAX [Concomitant]
     Dosage: 600MG PER DAY
     Route: 048
     Dates: start: 20051229, end: 20060117
  2. ALDACTONE [Concomitant]
     Dosage: 50MG PER DAY
     Route: 048
     Dates: start: 20060104, end: 20060107
  3. FOIPAN [Concomitant]
     Dosage: 300MG PER DAY
     Route: 048
     Dates: start: 20060106, end: 20060117
  4. HAPTOGLOBIN [Concomitant]
     Dosage: 2IU3 PER DAY
     Route: 042
     Dates: start: 20060105, end: 20060105
  5. SULFAMETHOXAZOLE [Concomitant]
     Dosage: 1IUAX PER DAY
     Route: 048
     Dates: start: 20051223, end: 20060104
  6. IMMUNE GLOBULIN INTRAVENOUS (HUMAN) [Concomitant]
     Dosage: 5000MG PER DAY
     Route: 042
     Dates: start: 20060109, end: 20060109
  7. PENTAZOCINE LACTATE [Concomitant]
     Dosage: 15MG PER DAY
     Dates: start: 20060116, end: 20060126
  8. GANCICLOVIR [Suspect]
     Dosage: 125MG PER DAY
     Dates: start: 20060116, end: 20060224
  9. SOLU-CORTEF [Concomitant]
     Dosage: 200MG PER DAY
     Route: 042
     Dates: start: 20060105, end: 20060212
  10. MEROPENEM [Concomitant]
     Dosage: 2G PER DAY
     Route: 042
     Dates: start: 20060107, end: 20060125
  11. PENTAZOCINE LACTATE [Concomitant]
     Dosage: 1.5ML PER DAY
     Dates: start: 20060114, end: 20060116
  12. GRAN [Concomitant]
     Dosage: 450MCG PER DAY
     Dates: start: 20060110, end: 20060120
  13. PREDNISOLONE [Concomitant]
     Dosage: 20MG PER DAY
     Route: 048
     Dates: start: 20051227, end: 20051230
  14. LEVOFLOXACIN [Concomitant]
     Dosage: 600MG PER DAY
     Route: 048
     Dates: start: 20051229, end: 20060108
  15. DIFLUCAN [Concomitant]
     Dosage: 200MG PER DAY
     Route: 048
     Dates: start: 20051229, end: 20060119
  16. RAMELTEON [Concomitant]
     Dosage: .3MG PER DAY
     Route: 042
     Dates: start: 20051229, end: 20060103
  17. POLYETHYLENE GLYCOL TREATED HUMAN NORMAL IMMUNOGLOBULIN [Concomitant]
     Dosage: 7500MG PER DAY
     Route: 042
     Dates: start: 20060116
  18. PREDNISOLONE [Concomitant]
     Dosage: 10MG PER DAY
     Route: 048
     Dates: start: 20051231, end: 20060103
  19. PREDNISOLONE [Concomitant]
     Dosage: 5MG PER DAY
     Route: 048
     Dates: start: 20060104, end: 20060107
  20. ISONIAZID [Concomitant]
     Dosage: 300MG PER DAY
     Route: 048
     Dates: start: 20051229, end: 20060117
  21. URSO 250 [Concomitant]
     Dosage: 600MG PER DAY
     Route: 048
     Dates: start: 20051229, end: 20060119
  22. MOHRUS TAPE [Concomitant]
     Route: 062
     Dates: start: 20051229, end: 20060111
  23. FUROSEMIDE [Concomitant]
     Dosage: 100MG PER DAY
     Route: 042
     Dates: start: 20060120, end: 20060123
  24. CYCLOSPORINE [Suspect]
     Indication: IMMUNOSUPPRESSION
     Dosage: 150MG PER DAY
     Route: 042
     Dates: start: 20060104, end: 20060830
  25. ROHYPNOL [Concomitant]
     Dosage: 2MG PER DAY
     Route: 048
     Dates: start: 20051223, end: 20060118
  26. PRIMPERAN TAB [Concomitant]
     Dosage: 10MG PER DAY
     Dates: start: 20060107, end: 20060209
  27. ALBUMIN (HUMAN) [Concomitant]
     Route: 042
     Dates: start: 20060111, end: 20060130
  28. NEOPHYLLIN INJECTION [Concomitant]
     Dosage: 250MG PER DAY
     Route: 042
     Dates: start: 20060119, end: 20060123
  29. FLUDARA [Suspect]
     Indication: STEM CELL TRANSPLANT
     Dosage: 30MGM2 PER DAY
     Route: 042
     Dates: start: 20051229, end: 20060101
  30. ZANTAC [Concomitant]
     Dosage: 300MG PER DAY
     Route: 048
     Dates: start: 20051223, end: 20060119
  31. ISODINE GARGLE [Concomitant]
     Route: 002
     Dates: start: 20060102, end: 20060115
  32. FUROSEMIDE [Concomitant]
     Dosage: 20MG PER DAY
     Route: 048
     Dates: start: 20060104, end: 20060115
  33. FLURBIPROFEN [Concomitant]
     Dosage: 50MG PER DAY
     Route: 042
     Dates: start: 20060102, end: 20060126
  34. ALKERAN [Suspect]
     Indication: STEM CELL TRANSPLANT
     Dosage: 70MGM2 PER DAY
     Route: 042
     Dates: start: 20060102, end: 20060103
  35. FUNGIZONE [Concomitant]
     Dosage: 120ML PER DAY
     Route: 002
     Dates: start: 20051223, end: 20060126
  36. CEFTAZIDIME SODIUM [Concomitant]
     Dosage: 4G PER DAY
     Route: 042
     Dates: start: 20060101, end: 20060106
  37. FUROSEMIDE [Concomitant]
     Route: 042
     Dates: start: 20060112, end: 20060130

REACTIONS (5)
  - BLOOD CREATININE INCREASED [None]
  - BLOOD UREA INCREASED [None]
  - ACUTE MYELOID LEUKAEMIA [None]
  - RENAL IMPAIRMENT [None]
  - C-REACTIVE PROTEIN INCREASED [None]
